FAERS Safety Report 5366429-2 (Version None)
Quarter: 2007Q2

REPORT INFORMATION
  Report Type: 
  Country: None (occurrence: None)
  Receive Date: 20070622
  Receipt Date: 20070613
  Transmission Date: 20071010
  Serious: Yes (Other)
  Sender: FDA-Public Use
  Company Number: PHRM2007FR01695

PATIENT
  Age: 40 Year
  Sex: Female

DRUGS (5)
  1. ZOMETA [Suspect]
     Indication: METASTASES TO BONE
     Dosage: 4 MG, QMO
     Dates: start: 20070301
  2. ZOMETA [Suspect]
     Dosage: UNK, UNK
     Dates: start: 20040101, end: 20041001
  3. LYTOS [Suspect]
  4. TAMOXIFEN CITRATE [Concomitant]
  5. PREVISCAN [Concomitant]
     Indication: THROMBOSIS PROPHYLAXIS

REACTIONS (6)
  - EYELID OEDEMA [None]
  - GASTRIC DISORDER [None]
  - HYPERTENSION [None]
  - MUSCLE SPASMS [None]
  - OEDEMA PERIPHERAL [None]
  - VERTIGO [None]
